FAERS Safety Report 25705382 (Version 3)
Quarter: 2025Q4

REPORT INFORMATION
  Report Type: Spontaneous
  Country: CN (occurrence: CN)
  Receive Date: 20250820
  Receipt Date: 20251216
  Transmission Date: 20260118
  Serious: Yes (Hospitalization)
  Sender: BIOGEN
  Company Number: CN-BIOGEN-2025BI01321379

PATIENT
  Age: 63 Year
  Sex: Male

DRUGS (7)
  1. QALSODY [Suspect]
     Active Substance: TOFERSEN
     Indication: Amyotrophic lateral sclerosis
     Dates: start: 20250610, end: 20250805
  2. QALSODY [Suspect]
     Active Substance: TOFERSEN
     Dates: start: 20250610, end: 20250902
  3. COENZYME Q10 [Concomitant]
     Active Substance: DIETARY SUPPLEMENT\UBIDECARENONE
     Indication: Product used for unknown indication
  4. VITAMIN E [Concomitant]
     Active Substance: .ALPHA.-TOCOPHEROL
     Indication: Product used for unknown indication
  5. VITAMIN B1 [Concomitant]
     Active Substance: THIAMINE HYDROCHLORIDE
     Indication: Product used for unknown indication
  6. RILUZOLE [Concomitant]
     Active Substance: RILUZOLE
     Indication: Product used for unknown indication
  7. METHYLCOBALAMIN [Concomitant]
     Active Substance: METHYLCOBALAMIN
     Indication: Product used for unknown indication

REACTIONS (6)
  - Decreased appetite [Recovered/Resolved]
  - CSF protein increased [Not Recovered/Not Resolved]
  - Headache [Recovered/Resolved]
  - CSF cell count increased [Recovered/Resolved]
  - Choking [Recovered/Resolved]
  - Chest discomfort [Recovered/Resolved]

NARRATIVE: CASE EVENT DATE: 20250620
